FAERS Safety Report 11318033 (Version 1)
Quarter: 2015Q3

REPORT INFORMATION
  Report Type: Spontaneous
  Country: US (occurrence: US)
  Receive Date: 20150728
  Receipt Date: 20150728
  Transmission Date: 20151125
  Serious: No
  Sender: FDA-Public Use
  Company Number: US-VERTEX PHARMACEUTICALS-2015-003001

PATIENT
  Sex: Female

DRUGS (3)
  1. BUDESONIDE. [Concomitant]
     Active Substance: BUDESONIDE
     Dosage: UNK
  2. ORKAMBI [Suspect]
     Active Substance: IVACAFTOR\LUMACAFTOR
     Indication: CYSTIC FIBROSIS
     Dosage: UNK
     Route: 048
  3. ALBUTEROL. [Concomitant]
     Active Substance: ALBUTEROL
     Dosage: UNK

REACTIONS (1)
  - Bronchospasm [Unknown]

NARRATIVE: CASE EVENT DATE: 201507
